FAERS Safety Report 13118019 (Version 1)
Quarter: 2017Q1

REPORT INFORMATION
  Report Type: Spontaneous
  Country: FR (occurrence: FR)
  Receive Date: 20170116
  Receipt Date: 20170116
  Transmission Date: 20170428
  Serious: Yes (Hospitalization)
  Sender: FDA-Public Use
  Company Number: FR-INDIVIOR LIMITED-INDV-097687-2017

PATIENT
  Age: 35 Year
  Sex: Male

DRUGS (1)
  1. SUBUTEX [Suspect]
     Active Substance: BUPRENORPHINE HYDROCHLORIDE
     Indication: PRODUCT USED FOR UNKNOWN INDICATION
     Dosage: UNKNOWN
     Route: 051

REACTIONS (4)
  - Schizophrenia [Unknown]
  - Intentional product use issue [Recovered/Resolved]
  - Condition aggravated [Unknown]
  - Injection site abscess [Recovered/Resolved]
